FAERS Safety Report 16090722 (Version 1)
Quarter: 2019Q1

REPORT INFORMATION
  Report Type: Report from Study
  Country: US (occurrence: US)
  Receive Date: 20190319
  Receipt Date: 20190319
  Transmission Date: 20190418
  Serious: Yes (Other)
  Sender: FDA-Public Use
  Company Number: US-ACTELION-A-NJ2017-150603

PATIENT
  Age: 45 Year
  Sex: Female

DRUGS (9)
  1. REMODULIN [Concomitant]
     Active Substance: TREPROSTINIL
     Dosage: 12 NG/KG, PER MIN
     Route: 065
     Dates: start: 201601
  2. REMODULIN [Concomitant]
     Active Substance: TREPROSTINIL
     Dosage: 18.7 NG/KG, PER MIN
     Dates: start: 201512
  3. TRACLEER [Suspect]
     Active Substance: BOSENTAN
     Indication: PULMONARY ARTERIAL HYPERTENSION
     Dosage: 125 MG, BID
     Route: 048
     Dates: start: 20130626
  4. SPIRONOLACTONE. [Concomitant]
     Active Substance: SPIRONOLACTONE
  5. REMODULIN [Concomitant]
     Active Substance: TREPROSTINIL
     Dosage: 39.1 NG/KG, PER MIN
     Dates: start: 20171017
  6. REMODULIN [Concomitant]
     Active Substance: TREPROSTINIL
     Dosage: 25.4 NG/KG, PER MIN
  7. FUROSEMIDE. [Concomitant]
     Active Substance: FUROSEMIDE
  8. NEXIUM [Concomitant]
     Active Substance: ESOMEPRAZOLE MAGNESIUM
  9. DIGOXIN. [Concomitant]
     Active Substance: DIGOXIN

REACTIONS (12)
  - Lip swelling [Recovered/Resolved]
  - Mouth swelling [Recovering/Resolving]
  - Influenza like illness [Recovered/Resolved]
  - Catheter site pruritus [Recovering/Resolving]
  - Catheter site discharge [Recovering/Resolving]
  - Catheter site erythema [Recovering/Resolving]
  - Catheter site rash [Not Recovered/Not Resolved]
  - Transplant [Not Recovered/Not Resolved]
  - Hypersensitivity [Recovering/Resolving]
  - Lung disorder [Not Recovered/Not Resolved]
  - Rash pruritic [Not Recovered/Not Resolved]
  - Catheter site infection [Recovering/Resolving]

NARRATIVE: CASE EVENT DATE: 20170115
